FAERS Safety Report 26146578 (Version 1)
Quarter: 2025Q4

REPORT INFORMATION
  Report Type: Spontaneous
  Country: EU (occurrence: EU)
  Receive Date: 20251211
  Receipt Date: 20251211
  Transmission Date: 20260117
  Serious: Yes (Hospitalization, Disabling, Congenital Anomaly, Other)
  Sender: SANDOZ
  Company Number: EU-PHARMAAND-2021-Clomipramine-161

PATIENT
  Sex: Female

DRUGS (6)
  1. ANAFRANIL [Suspect]
     Active Substance: CLOMIPRAMINE HYDROCHLORIDE
     Indication: Depression
     Dosage: 150 MG, QD, STRENGTH: 75 MG
     Route: 064
     Dates: start: 2018, end: 20190320
  2. ANAFRANIL [Suspect]
     Active Substance: CLOMIPRAMINE HYDROCHLORIDE
     Indication: Foetal exposure during pregnancy
  3. OLANZAPINE [Suspect]
     Active Substance: OLANZAPINE
     Indication: Depression
     Dosage: STRENGTH AND DOSE: UNKNOWN
     Route: 064
     Dates: start: 2018, end: 20190320
  4. OLANZAPINE [Suspect]
     Active Substance: OLANZAPINE
     Indication: Foetal exposure during pregnancy
  5. SERTRALINE [Suspect]
     Active Substance: SERTRALINE HYDROCHLORIDE
     Indication: Depression
     Dosage: 150 MG, QD,STRENGTH: 100 MG
     Route: 064
     Dates: start: 2018, end: 20190320
  6. SERTRALINE [Suspect]
     Active Substance: SERTRALINE HYDROCHLORIDE
     Indication: Foetal exposure during pregnancy

REACTIONS (5)
  - Cardiac failure [Recovered/Resolved]
  - Cardiomegaly [Unknown]
  - Tachypnoea [Recovering/Resolving]
  - Impaired quality of life [Recovering/Resolving]
  - Foetal exposure during pregnancy [Recovered/Resolved]

NARRATIVE: CASE EVENT DATE: 20190101
